FAERS Safety Report 8885818 (Version 1)
Quarter: 2012Q4

REPORT INFORMATION
  Report Type: 
  Country: BR (occurrence: BR)
  Receive Date: 20121102
  Receipt Date: 20121102
  Transmission Date: 20130627
  Serious: Yes (Other)
  Sender: FDA-Public Use
  Company Number: BR-PFIZER INC-2012270696

PATIENT
  Age: 52 Year
  Sex: Female
  Weight: 59 kg

DRUGS (6)
  1. LYRICA [Suspect]
     Indication: PAIN IN HAND
     Dosage: 75 mg, 1 capsule 1x/day
     Dates: start: 20101026
  2. LYRICA [Suspect]
     Indication: WRIST PAIN
  3. FLUOXETINE [Concomitant]
     Indication: RELAXATION THERAPY
     Dosage: 2 DF, 1x/day
  4. OMEPRAZOLE [Concomitant]
     Indication: GASTRITIS
     Dosage: 1 DF, 1x/day
  5. IMIPRAMINE [Concomitant]
     Indication: RELAXATION THERAPY
     Dosage: 1 DF, 1x/day
  6. IMIPRAMINE [Concomitant]
     Indication: SLEEP DISORDER

REACTIONS (4)
  - Carpal tunnel syndrome [Unknown]
  - Limb injury [Unknown]
  - Pain in extremity [Not Recovered/Not Resolved]
  - Drug ineffective [Not Recovered/Not Resolved]
